FAERS Safety Report 8585175-5 (Version None)
Quarter: 2012Q2

REPORT INFORMATION
  Report Type: 
  Country: None (occurrence: None)
  Receive Date: 20120423
  Receipt Date: 20111215
  Transmission Date: 20120825
  Serious: Yes (Hospitalization)
  Sender: FDA-Public Use
  Company Number: FK201102997

PATIENT
  Age: 60 Year
  Sex: Male
  Weight: 251.4 kg

DRUGS (9)
  1. PROVENGE [Suspect]
     Dosage: 250 ML, SINGLE INFUSION, INTRAVENOUS (NOT OTHERWISE SPECIFIED)
     Route: 042
     Dates: start: 20111024, end: 20111024
  2. LEUPRORELN ACETATE (LEUPRORELIN ACETATE) [Concomitant]
  3. BICALUTAMIDE [Concomitant]
  4. FUROSEMIDE [Concomitant]
  5. HEPARIN SODIUM [Suspect]
     Indication: PRODUCT USED FOR UNKNOWN INDICATION
  6. PROVENGE [Suspect]
     Dosage: 250 ML, SINGLE INFUSION, INTRAVENOUS (NOT OTHERWISE SPECIFIED)
     Route: 042
     Dates: start: 20111003, end: 20111003
  7. GABAPENTIN [Concomitant]
  8. MORNIFLUMATE (MORNIFLUMATE) [Concomitant]
  9. PROVENGE [Suspect]
     Dosage: 250 ML, SINGLE INFUSION, INTRAVENOUS (NOT OTHERWISE SPECIFIED)
     Route: 042
     Dates: start: 20110919, end: 20110919

REACTIONS (3)
  - AIR EMBOLISM [None]
  - HAEMOGLOBIN DECREASED [None]
  - HEPARIN-INDUCED THROMBOCYTOPENIA [None]
